FAERS Safety Report 18544372 (Version 1)
Quarter: 2020Q4

REPORT INFORMATION
  Report Type: Spontaneous
  Country: US (occurrence: US)
  Receive Date: 20201124
  Receipt Date: 20201124
  Transmission Date: 20210114
  Serious: No
  Sender: FDA-Public Use
  Company Number: None

PATIENT
  Age: 44 Year
  Sex: Female
  Weight: 81.27 kg

DRUGS (2)
  1. BAMLANIVIMAB. [Suspect]
     Active Substance: BAMLANIVIMAB
     Indication: COVID-19
     Route: 041
     Dates: start: 20201124, end: 20201124
  2. REMICADE [Concomitant]
     Active Substance: INFLIXIMAB
     Dates: start: 20201118, end: 20201118

REACTIONS (4)
  - Infusion related reaction [None]
  - Paraesthesia [None]
  - Flushing [None]
  - Blood pressure systolic decreased [None]

NARRATIVE: CASE EVENT DATE: 20201124
